FAERS Safety Report 6015347-5 (Version None)
Quarter: 2008Q4

REPORT INFORMATION
  Report Type: 
  Country: None (occurrence: None)
  Receive Date: 20081222
  Receipt Date: 20081210
  Transmission Date: 20090506
  Serious: Yes (Other)
  Sender: FDA-Public Use
  Company Number: US-WYE-H07140108

PATIENT
  Sex: Female
  Weight: 89 kg

DRUGS (2)
  1. RELISTOR [Suspect]
     Indication: CONSTIPATION
     Route: 058
     Dates: start: 20081206, end: 20081208
  2. AVASTIN [Concomitant]
     Indication: LUNG NEOPLASM MALIGNANT
     Dosage: UNSPECIFIED
     Dates: start: 20081129, end: 20081129

REACTIONS (1)
  - INTESTINAL PERFORATION [None]
